FAERS Safety Report 19175566 (Version 1)
Quarter: 2021Q2

REPORT INFORMATION
  Report Type: Spontaneous
  Country: BR (occurrence: BR)
  Receive Date: 20210423
  Receipt Date: 20210423
  Transmission Date: 20210717
  Serious: Yes (Other)
  Sender: FDA-Public Use
  Company Number: BR-PFIZER INC-2021423201

PATIENT
  Age: 78 Year
  Sex: Female

DRUGS (5)
  1. FRONTAL XR [Suspect]
     Active Substance: ALPRAZOLAM
     Indication: ANXIETY DISORDER
  2. DESVENLAFAXINE SUCCINATE MONOHYDRATE [Suspect]
     Active Substance: DESVENLAFAXINE SUCCINATE
     Dosage: UNK
  3. FRONTAL XR [Suspect]
     Active Substance: ALPRAZOLAM
     Indication: PANIC REACTION
     Dosage: 2 MG, 1X/DAY  (1 TABLET EVERYDAY IN THE MORNING)
  4. FRONTAL [Suspect]
     Active Substance: ALPRAZOLAM
     Indication: PANIC REACTION
  5. FRONTAL [Suspect]
     Active Substance: ALPRAZOLAM
     Indication: ANXIETY DISORDER

REACTIONS (5)
  - Arthralgia [Unknown]
  - Spinal osteoarthritis [Unknown]
  - Abdominal fat apron [Unknown]
  - Hepatic steatosis [Unknown]
  - Type 2 diabetes mellitus [Unknown]
